FAERS Safety Report 6407818-4 (Version None)
Quarter: 2009Q4

REPORT INFORMATION
  Report Type: 
  Country: None (occurrence: None)
  Receive Date: 20091015
  Receipt Date: 20091007
  Transmission Date: 20100525
  Serious: Yes (Hospitalization)
  Sender: FDA-Public Use
  Company Number: 014842

PATIENT
  Age: 41 Year
  Sex: Female
  Weight: 80 kg

DRUGS (5)
  1. PRIALT [Suspect]
     Indication: POST LAMINECTOMY SYNDROME
     Dosage: 0.15 UG, ONCE/HOUR, INTRATHECAL
     Route: 037
     Dates: start: 20090825, end: 20090827
  2. TIAPRIDE (TIAPRIDE) [Concomitant]
  3. CITALOPRAM HYDROBROMIDE [Concomitant]
  4. CLONAZEPAM [Concomitant]
  5. GABAPENTIN [Concomitant]

REACTIONS (4)
  - CONFUSIONAL STATE [None]
  - ERYTHEMA [None]
  - FACE OEDEMA [None]
  - PULMONARY EMBOLISM [None]
